FAERS Safety Report 5227564-2 (Version None)
Quarter: 2007Q1

REPORT INFORMATION
  Report Type: 
  Country: None (occurrence: None)
  Receive Date: 20061201
  Receipt Date: 20061004
  Transmission Date: 20070707
  Serious: No
  Sender: FDA-Public Use
  Company Number: US200610000855

PATIENT
  Age: 45 Year
  Sex: Female

DRUGS (1)
  1. CYMBALTA [Suspect]
     Indication: PAIN
     Dosage: SEE IMAGE
     Dates: start: 20050101

REACTIONS (4)
  - ARTHRALGIA [None]
  - BLOOD PROLACTIN INCREASED [None]
  - DIZZINESS [None]
  - FATIGUE [None]
